FAERS Safety Report 5352004-2 (Version None)
Quarter: 2007Q2

REPORT INFORMATION
  Report Type: 
  Country: None (occurrence: None)
  Receive Date: 20070611
  Receipt Date: 20070529
  Transmission Date: 20071010
  Serious: Yes (Hospitalization)
  Sender: FDA-Public Use
  Company Number: PHRM2007FR01547

PATIENT
  Age: 26 Year
  Sex: Male

DRUGS (2)
  1. IDARAC [Suspect]
     Indication: PAIN
     Dosage: 6 DF DAILY
     Route: 048
  2. GLEEVEC [Suspect]
     Indication: CHRONIC MYELOID LEUKAEMIA
     Dosage: 600 MG DAILY
     Route: 048

REACTIONS (3)
  - ACUTE ABDOMEN [None]
  - DRUG INTERACTION [None]
  - VOMITING [None]
